FAERS Safety Report 4745041-X (Version None)
Quarter: 2005Q3

REPORT INFORMATION
  Report Type: 
  Country: None (occurrence: None)
  Receive Date: 20050812
  Receipt Date: 20050804
  Transmission Date: 20060218
  Serious: Yes (Hospitalization)
  Sender: FDA-Public Use
  Company Number: 2005106618

PATIENT
  Age: 81 Year
  Sex: Male
  Weight: 76 kg

DRUGS (9)
  1. AMLODIPINE [Suspect]
     Indication: ILL-DEFINED DISORDER
     Dosage: 1 DOSE FORM (UNK, INTERVAL: EVERY DAY), ORAL
     Route: 048
     Dates: start: 20050118
  2. ACETYLSALICYLATE LYSINE [Suspect]
     Indication: ILL-DEFINED DISORDER
     Dosage: 160 MG (INTERVAL: EVERY DAY),ORAL
     Route: 048
     Dates: start: 20050118
  3. CLARITHROMYCIN [Suspect]
     Indication: ILL-DEFINED DISORDER
     Dosage: ORAL
     Route: 048
     Dates: start: 20050524, end: 20050531
  4. PANTOPRAZOLE SODIUM [Suspect]
     Indication: ILL-DEFINED DISORDER
     Dosage: 20 MG (INTERVAL: EVERY DAY), ORAL
     Route: 048
     Dates: start: 20050118
  5. PRAVASTATINE                   (PRAVASTATIN) [Suspect]
     Indication: ILL-DEFINED DISORDER
     Dosage: 20 MG (INTERVAL: EVERY DAY), ORAL
     Route: 048
     Dates: start: 20050118
  6. THALIDOMIDE (THALIDOMIDE) [Suspect]
     Indication: ILL-DEFINED DISORDER
     Dosage: 100 MG (INTERVAL: EVERY DAY), ORAL
     Route: 048
     Dates: start: 20050118, end: 20050708
  7. ALVERINE CITRATE (ALVERINE CITRATE) [Concomitant]
  8. SIMETICONE (SIMETICONE) [Concomitant]
  9. PHLOROGLUCINOL (PHLOROGLUCINOL) [Concomitant]

REACTIONS (24)
  - ANOREXIA [None]
  - ASTHENIA [None]
  - BLOOD PRESSURE DIASTOLIC DECREASED [None]
  - BRONCHITIS [None]
  - C-REACTIVE PROTEIN INCREASED [None]
  - DEHYDRATION [None]
  - DIARRHOEA [None]
  - DYSPNOEA [None]
  - ESCHERICHIA INFECTION [None]
  - FLUID INTAKE REDUCED [None]
  - GENERAL PHYSICAL HEALTH DETERIORATION [None]
  - HAEMATURIA [None]
  - HYPOKALAEMIA [None]
  - MYELOMA RECURRENCE [None]
  - NEUROPATHY [None]
  - PALLOR [None]
  - PANCYTOPENIA [None]
  - PLASMACYTOSIS [None]
  - PROTEINURIA [None]
  - PYREXIA [None]
  - RENAL FAILURE ACUTE [None]
  - TACHYPNOEA [None]
  - THIRST [None]
  - VOMITING [None]
